FAERS Safety Report 21259479 (Version 1)
Quarter: 2022Q3

REPORT INFORMATION
  Report Type: Spontaneous
  Country: US (occurrence: None)
  Receive Date: 20220825
  Receipt Date: 20220825
  Transmission Date: 20221026
  Serious: Yes (Life-Threatening, Hospitalization, Other)
  Sender: FDA-Public Use
  Company Number: None

PATIENT
  Age: 17 Year
  Sex: Female
  Weight: 43.5 kg

DRUGS (1)
  1. FIDAXOMICIN [Suspect]
     Active Substance: FIDAXOMICIN
     Indication: Clostridium difficile infection
     Dosage: FREQUENCY : TWICE A DAY;?
     Route: 048
     Dates: start: 20220824, end: 20220825

REACTIONS (3)
  - Hypersensitivity [None]
  - Angioedema [None]
  - Obstructive airways disorder [None]

NARRATIVE: CASE EVENT DATE: 20220824
